FAERS Safety Report 10100473 (Version 5)
Quarter: 2017Q2

REPORT INFORMATION
  Report Type: Spontaneous
  Country: CH (occurrence: CH)
  Receive Date: 20140423
  Receipt Date: 20170613
  Transmission Date: 20170829
  Serious: Yes (Death, Hospitalization, Other)
  Sender: FDA-Public Use
  Company Number: CH-CELGENEUS-151-21880-13042712

PATIENT

DRUGS (3)
  1. REVLIMID [Suspect]
     Active Substance: LENALIDOMIDE
     Indication: PLASMA CELL MYELOMA
     Dosage: 25 MILLIGRAM
     Route: 048
  2. DEXAMETHASONE. [Concomitant]
     Active Substance: DEXAMETHASONE
     Indication: PLASMA CELL MYELOMA
     Dosage: 40/20 MG
     Route: 048
  3. BENDAMUSTINE [Concomitant]
     Active Substance: BENDAMUSTINE
     Indication: PLASMA CELL MYELOMA
     Dosage: 75 MILLIGRAM/SQ. METER
     Route: 041

REACTIONS (46)
  - Plasma cell myeloma [Fatal]
  - Thrombocytopenia [Unknown]
  - Dermatitis bullous [Unknown]
  - Hyperglycaemia [Unknown]
  - Fatigue [Unknown]
  - Febrile neutropenia [Unknown]
  - Anxiety [Unknown]
  - Neuropathy peripheral [Unknown]
  - Herpes simplex [Unknown]
  - Anaemia [Unknown]
  - Rash [Unknown]
  - Diarrhoea [Unknown]
  - Sepsis [Unknown]
  - Genital infection [Unknown]
  - Dysgeusia [Unknown]
  - Thrombophlebitis [Unknown]
  - Seizure [Unknown]
  - Post procedural haemorrhage [Unknown]
  - Constipation [Unknown]
  - Neutropenia [Unknown]
  - Angiopathy [Unknown]
  - Nausea [Unknown]
  - Infection [Unknown]
  - Angiocentric lymphoma [Unknown]
  - Myelodysplastic syndrome [Unknown]
  - Leukopenia [Unknown]
  - Erythema multiforme [Unknown]
  - Renal failure [Unknown]
  - Interstitial lung disease [Unknown]
  - Cerebrovascular accident [Unknown]
  - Cataract [Unknown]
  - Pneumonia [Unknown]
  - Alanine aminotransferase increased [Unknown]
  - Embolism [Unknown]
  - Skin toxicity [Unknown]
  - Bronchitis [Unknown]
  - Abdominal pain [Unknown]
  - Vomiting [Unknown]
  - Hepatic enzyme increased [Unknown]
  - Respiratory tract infection [Unknown]
  - Respiratory failure [Fatal]
  - Swollen tongue [Unknown]
  - Dysphagia [Unknown]
  - Electrocardiogram repolarisation abnormality [Unknown]
  - Hypokalaemia [Unknown]
  - Erythema [Unknown]
